FAERS Safety Report 5773067-6 (Version None)
Quarter: 2008Q2

REPORT INFORMATION
  Report Type: 
  Country: None (occurrence: None)
  Receive Date: 20080611
  Receipt Date: 20080604
  Transmission Date: 20081010
  Serious: Yes (Death, Hospitalization)
  Sender: FDA-Public Use
  Company Number: 2008SP010019

PATIENT
  Age: 79 Year
  Sex: Female
  Weight: 53.6 kg

DRUGS (22)
  1. TEMODAR [Suspect]
     Indication: ACUTE MYELOID LEUKAEMIA
     Dosage: 160 MG; QD; PO, 320 MG; QD; PO
     Route: 048
     Dates: start: 20080430, end: 20080513
  2. TEMODAR [Suspect]
     Indication: ACUTE MYELOID LEUKAEMIA
     Dosage: 160 MG; QD; PO, 320 MG; QD; PO
     Route: 048
     Dates: start: 20080514, end: 20080520
  3. LISINOPRIL [Concomitant]
  4. CIPRO [Concomitant]
  5. FLAGYL [Concomitant]
  6. ATIVAN [Concomitant]
  7. ATIVAN [Concomitant]
  8. HALDOL SOLUTAB [Concomitant]
  9. TYLENOL (CAPLET) [Concomitant]
  10. ISOPTO TEARS /00283601/ [Concomitant]
  11. SALIVA SUBSTITUTE [Concomitant]
  12. ATROPINE [Concomitant]
  13. ROBINUL [Concomitant]
  14. SENOKOT [Concomitant]
  15. ATIVAN [Concomitant]
  16. COMPAZINE /00013302/ [Concomitant]
  17. REGLAN [Concomitant]
  18. BENADRYL [Concomitant]
  19. MORPHINE [Concomitant]
  20. DILAUDID [Concomitant]
  21. BENADRYL [Concomitant]
  22. MORPHINE [Concomitant]

REACTIONS (33)
  - ABDOMINAL PAIN [None]
  - ACUTE MYELOID LEUKAEMIA [None]
  - ANAEMIA [None]
  - AORTIC VALVE STENOSIS [None]
  - ATELECTASIS [None]
  - ATRIAL FIBRILLATION [None]
  - CARDIO-RESPIRATORY ARREST [None]
  - COAGULOPATHY [None]
  - DIARRHOEA [None]
  - DISEASE PROGRESSION [None]
  - DIVERTICULITIS [None]
  - DYSPNOEA [None]
  - EMBOLISM [None]
  - HEPATOSPLENOMEGALY [None]
  - HYPONATRAEMIA [None]
  - LETHARGY [None]
  - LEUKOCYTOSIS [None]
  - LEUKOSTASIS [None]
  - LUNG CONSOLIDATION [None]
  - LUNG INFILTRATION [None]
  - NAUSEA [None]
  - NEUTROPENIA [None]
  - NIGHT SWEATS [None]
  - PETECHIAE [None]
  - PLEURAL EFFUSION [None]
  - POLYDIPSIA [None]
  - PYREXIA [None]
  - RASH MACULO-PAPULAR [None]
  - RENAL INFARCT [None]
  - SPLENIC INFARCTION [None]
  - THROMBOCYTOPENIA [None]
  - UNRESPONSIVE TO STIMULI [None]
  - VOMITING [None]
